FAERS Safety Report 16071365 (Version 1)
Quarter: 2019Q1

REPORT INFORMATION
  Report Type: Spontaneous
  Country: US (occurrence: US)
  Receive Date: 20190213
  Receipt Date: 20190213
  Transmission Date: 20190418
  Serious: No
  Sender: FDA-Public Use
  Company Number: None

PATIENT
  Age: 41 Year
  Sex: Male

DRUGS (1)
  1. STELARA [Suspect]
     Active Substance: USTEKINUMAB
     Route: 058
     Dates: start: 20180101

REACTIONS (6)
  - Influenza [None]
  - Pain [None]
  - Nasopharyngitis [None]
  - Chills [None]
  - Drug interaction [None]
  - Upper respiratory tract infection [None]

NARRATIVE: CASE EVENT DATE: 20190213
